FAERS Safety Report 10247305 (Version 4)
Quarter: 2015Q3

REPORT INFORMATION
  Report Type: Spontaneous
  Country: US (occurrence: US)
  Receive Date: 20140619
  Receipt Date: 20150803
  Transmission Date: 20151125
  Serious: Yes (Disabling)
  Sender: FDA-Public Use
  Company Number: US-009507513-1406USA007329

PATIENT
  Sex: Male

DRUGS (3)
  1. FINASTERIDE. [Suspect]
     Active Substance: FINASTERIDE
     Indication: ALOPECIA
     Dosage: 1 MG, UNK
     Route: 048
     Dates: start: 1997
  2. PROPECIA [Suspect]
     Active Substance: FINASTERIDE
     Dosage: 0.5 MG, BID
     Route: 048
     Dates: start: 1997
  3. PROPECIA [Suspect]
     Active Substance: FINASTERIDE
     Indication: ALOPECIA
     Dosage: 1 MG, QD
     Route: 048
     Dates: start: 1998, end: 19980616

REACTIONS (33)
  - Erectile dysfunction [Not Recovered/Not Resolved]
  - Feeling abnormal [Not Recovered/Not Resolved]
  - Ejaculation failure [Not Recovered/Not Resolved]
  - Depression [Not Recovered/Not Resolved]
  - Hyperlipidaemia [Unknown]
  - Back pain [Unknown]
  - Neck pain [Unknown]
  - Cognitive disorder [Not Recovered/Not Resolved]
  - Hair disorder [Unknown]
  - Wrong technique in product usage process [Unknown]
  - Arthralgia [Unknown]
  - Dysuria [Unknown]
  - Hypoaesthesia [Unknown]
  - Weight decreased [Unknown]
  - Hypotonia [Unknown]
  - Sexual dysfunction [Not Recovered/Not Resolved]
  - Libido decreased [Not Recovered/Not Resolved]
  - Sinusitis [Unknown]
  - Insomnia [Not Recovered/Not Resolved]
  - Hypogonadism [Unknown]
  - Pain in extremity [Unknown]
  - Musculoskeletal pain [Unknown]
  - Ligament sprain [Unknown]
  - Laceration [Unknown]
  - Ejaculation disorder [Not Recovered/Not Resolved]
  - Muscle disorder [Unknown]
  - Reproductive tract disorder [Not Recovered/Not Resolved]
  - Anxiety [Not Recovered/Not Resolved]
  - Penis disorder [Unknown]
  - Endocrine disorder [Unknown]
  - Blood testosterone decreased [Unknown]
  - Fatigue [Unknown]
  - Hypertriglyceridaemia [Unknown]

NARRATIVE: CASE EVENT DATE: 1998
